FAERS Safety Report 8733420 (Version 4)
Quarter: 2012Q4

REPORT INFORMATION
  Report Type: 
  Country: US (occurrence: US)
  Receive Date: 20120821
  Receipt Date: 20121019
  Transmission Date: 20130627
  Serious: Yes (Hospitalization)
  Sender: FDA-Public Use
  Company Number: US-SANOFI-AVENTIS-2012SA058010

PATIENT
  Age: 71 Year
  Sex: Male
  Weight: 157 kg

DRUGS (12)
  1. LANTUS [Suspect]
     Indication: TYPE II DIABETES MELLITUS
     Dosage: Dose:76 unit(s)
     Route: 058
     Dates: start: 2007
  2. LANTUS [Suspect]
     Indication: TYPE II DIABETES MELLITUS
     Dosage: Dose:76 unit(s)
     Route: 058
     Dates: start: 2007
  3. LANTUS [Suspect]
     Indication: TYPE II DIABETES MELLITUS
     Dosage: Dose:76 unit(s)
     Route: 058
     Dates: start: 2007
  4. LANTUS [Suspect]
     Indication: TYPE II DIABETES MELLITUS
     Dosage: Dose:76 unit(s)
     Route: 058
     Dates: start: 2007
  5. VALSARTAN [Concomitant]
  6. FUROSEMIDE [Concomitant]
  7. GLIMEPIRIDE [Concomitant]
  8. ASPIRIN [Concomitant]
  9. OMEPRAZOLE [Concomitant]
  10. CYANOCOBALAMIN [Concomitant]
     Route: 048
  11. DOXAZOSIN [Concomitant]
     Route: 048
  12. INSULIN, REGULAR [Concomitant]

REACTIONS (4)
  - Renal failure [Unknown]
  - Blood pressure decreased [Unknown]
  - Dehydration [Unknown]
  - Diarrhoea [Recovered/Resolved]
